FAERS Safety Report 9350630 (Version 1)
Quarter: 2013Q2

REPORT INFORMATION
  Report Type: Spontaneous
  Country: CN (occurrence: CN)
  Receive Date: 20130617
  Receipt Date: 20130617
  Transmission Date: 20140414
  Serious: Yes (Other)
  Sender: FDA-Public Use
  Company Number: CN-JNJFOC-20130602736

PATIENT
  Age: 66 Year
  Sex: Male
  Weight: 73.5 kg

DRUGS (3)
  1. TYLENOL COLD [Suspect]
     Indication: UPPER RESPIRATORY TRACT INFECTION
     Route: 048
     Dates: start: 20120927, end: 20120929
  2. WARFARIN [Suspect]
     Indication: PRODUCT USED FOR UNKNOWN INDICATION
     Route: 048
     Dates: start: 20120918, end: 20120929
  3. CHINESE HERBAL MEDICINE [Suspect]
     Indication: PRODUCT USED FOR UNKNOWN INDICATION
     Route: 048
     Dates: start: 20120927, end: 20120929

REACTIONS (3)
  - Cyanosis [Not Recovered/Not Resolved]
  - Pruritus [Unknown]
  - Skin exfoliation [Recovering/Resolving]
